FAERS Safety Report 6774793-2 (Version None)
Quarter: 2010Q2

REPORT INFORMATION
  Report Type: 
  Country: None (occurrence: None)
  Receive Date: 20100616
  Receipt Date: 20100616
  Transmission Date: 20101027
  Serious: No
  Sender: FDA-Public Use
  Company Number: None

PATIENT
  Age: 53 Year
  Sex: Female
  Weight: 95.2554 kg

DRUGS (2)
  1. EFFEXOR XR [Suspect]
     Indication: DEPRESSION
     Dosage: 350 DAY BID PO, 37.5 WEANED IN 3 MONTHS BID PO
     Route: 048
  2. EFFEXOR XR [Suspect]
     Indication: POST-TRAUMATIC STRESS DISORDER
     Dosage: 350 DAY BID PO, 37.5 WEANED IN 3 MONTHS BID PO
     Route: 048

REACTIONS (2)
  - ANGER [None]
  - WITHDRAWAL SYNDROME [None]
